FAERS Safety Report 15659228 (Version 1)
Quarter: 2018Q4

REPORT INFORMATION
  Report Type: Report from Study
  Country: ES (occurrence: ES)
  Receive Date: 20181127
  Receipt Date: 20181127
  Transmission Date: 20190205
  Serious: Yes (Hospitalization)
  Sender: FDA-Public Use
  Company Number: ES-ACCORD-094102

PATIENT
  Age: 77 Year
  Sex: Male

DRUGS (6)
  1. ENALAPRIL [Concomitant]
     Active Substance: ENALAPRIL
     Indication: HYPERTENSION
     Route: 048
     Dates: start: 200510
  2. SIMVASTATIN. [Suspect]
     Active Substance: SIMVASTATIN
     Indication: DYSLIPIDAEMIA
     Route: 048
     Dates: start: 201511, end: 20160211
  3. AUGMENTINE PLUS [Interacting]
     Active Substance: AMOXICILLIN\CLAVULANIC ACID
     Indication: TOOTH ABSCESS
     Dosage: STRENGTH: 1.000 MG/62,5 MG
     Route: 048
     Dates: start: 20160116, end: 20160123
  4. ADIRO [Concomitant]
     Active Substance: ASPIRIN
     Dosage: STRENGTH: 100 MG
     Route: 048
     Dates: start: 201405
  5. URBASON [Concomitant]
     Active Substance: METHYLPREDNISOLONE
     Indication: TOOTH ABSCESS
     Dosage: STRENGTH: 16 MG, 30 TABLETS
     Route: 048
     Dates: start: 20160116, end: 20160125
  6. PARACETAMOL [Concomitant]
     Active Substance: ACETAMINOPHEN
     Indication: TOOTH ABSCESS
     Route: 048
     Dates: start: 20160116, end: 20160123

REACTIONS (2)
  - Hepatitis cholestatic [Recovered/Resolved]
  - Drug interaction [Unknown]

NARRATIVE: CASE EVENT DATE: 20160201
